FAERS Safety Report 5511774-0 (Version None)
Quarter: 2007Q4

REPORT INFORMATION
  Report Type: 
  Country: None (occurrence: None)
  Receive Date: 20071109
  Receipt Date: 20071029
  Transmission Date: 20080405
  Serious: Yes (Disabling)
  Sender: FDA-Public Use
  Company Number: JP-PFIZER INC-2007084637

PATIENT
  Sex: Female

DRUGS (9)
  1. CELECOX [Suspect]
     Indication: OSTEOARTHRITIS
     Route: 048
     Dates: start: 20070912, end: 20070921
  2. CELECOX [Suspect]
     Indication: ARTHRALGIA
  3. HYALURONIDASE [Concomitant]
     Dates: start: 20070915, end: 20070915
  4. NORVASC [Concomitant]
     Route: 048
  5. BLOPRESS [Concomitant]
     Route: 048
     Dates: start: 20051005
  6. PRAVASTATIN [Concomitant]
     Route: 048
     Dates: start: 20050609
  7. ITOROL [Concomitant]
     Route: 048
     Dates: start: 20050330
  8. FAMOTIDINE [Concomitant]
     Route: 048
     Dates: start: 20050722
  9. NITRODERM [Concomitant]

REACTIONS (1)
  - RASH GENERALISED [None]
